FAERS Safety Report 7849726 (Version 2)
Quarter: 2014Q1

REPORT INFORMATION
  Report Type: Spontaneous
  Country: US (occurrence: US)
  Receive Date: 20110310
  Receipt Date: 20140204
  Transmission Date: 20141002
  Serious: Yes (Other)
  Sender: FDA-Public Use
  Company Number: US-BAYER-2011-021523

PATIENT
  Age: 30 Year
  Sex: Female

DRUGS (4)
  1. YAZ [Suspect]
     Dosage: UNK
     Dates: start: 200602, end: 200708
  2. YASMIN [Suspect]
     Dosage: UNK
     Dates: start: 200602, end: 200708
  3. TRAZODONE [Concomitant]
  4. CITALOPRAM [Concomitant]

REACTIONS (2)
  - Gallbladder disorder [None]
  - Cholecystitis chronic [None]
